FAERS Safety Report 7233416-9 (Version None)
Quarter: 2011Q1

REPORT INFORMATION
  Report Type: 
  Country: None (occurrence: None)
  Receive Date: 20110107
  Receipt Date: 20110103
  Transmission Date: 20110831
  Serious: No
  Sender: FDA-Public Use
  Company Number: 20073974

PATIENT
  Age: 64 Year
  Sex: Female

DRUGS (4)
  1. LIORESAL [Suspect]
     Indication: MUSCLE SPASTICITY
     Dosage: DAILY, INTRATHECAL
     Route: 037
  2. CLONIDINE [Concomitant]
  3. HYDROMORPHONE HCL [Concomitant]
  4. BUPIVICAINE [Concomitant]

REACTIONS (2)
  - LUMBAR RADICULOPATHY [None]
  - DRUG INEFFECTIVE [None]
